FAERS Safety Report 5531395-3 (Version None)
Quarter: 2007Q4

REPORT INFORMATION
  Report Type: 
  Country: None (occurrence: None)
  Receive Date: 20071203
  Receipt Date: 20071121
  Transmission Date: 20080405
  Serious: Yes (Hospitalization)
  Sender: FDA-Public Use
  Company Number: EMADSS2003004282

PATIENT
  Age: 36 Year
  Sex: Female

DRUGS (2)
  1. REMICADE [Suspect]
     Route: 041
     Dates: start: 20010601
  2. REMICADE [Suspect]
     Indication: RHEUMATOID ARTHRITIS
     Route: 041
     Dates: start: 20010601

REACTIONS (4)
  - CEREBROVASCULAR ACCIDENT [None]
  - HEMIPLEGIA [None]
  - OPHTHALMOPLEGIA [None]
  - VASCULITIS [None]
